FAERS Safety Report 20022941 (Version 2)
Quarter: 2021Q4

REPORT INFORMATION
  Report Type: Report from Study
  Country: BR (occurrence: BR)
  Receive Date: 20211102
  Receipt Date: 20211202
  Transmission Date: 20220304
  Serious: Yes (Other)
  Sender: FDA-Public Use
  Company Number: BR-AMGEN-BRASL2021167668

PATIENT
  Age: 79 Year
  Sex: Female

DRUGS (7)
  1. EVENITY [Suspect]
     Active Substance: ROMOSOZUMAB-AQQG
     Indication: Osteoporosis
     Dosage: 90 MILLIGRAM (2 PENS ONCE A MONTH)
     Route: 065
     Dates: start: 20210921
  2. EVENITY [Suspect]
     Active Substance: ROMOSOZUMAB-AQQG
     Indication: Spinal fracture
  3. TOCILIZUMAB [Concomitant]
     Active Substance: TOCILIZUMAB
     Dosage: 80 MILLIGRAM, QMO
     Route: 042
  4. BENICAR [Concomitant]
     Active Substance: OLMESARTAN MEDOXOMIL
     Dosage: 20 MILLIGRAM, QD
  5. PREDNISOLONA [PREDNISOLONE ACETATE] [Concomitant]
     Dosage: 5 MILLIGRAM, QD
  6. ALLOPURINOL [Concomitant]
     Active Substance: ALLOPURINOL
     Dosage: 100 MILLIGRAM, BID
  7. ROSUVASTATIN [Concomitant]
     Active Substance: ROSUVASTATIN
     Dosage: 20 MILLIGRAM, QD (IN THE MORNING)

REACTIONS (2)
  - Gingival ulceration [Recovering/Resolving]
  - Incorrect dose administered [Unknown]

NARRATIVE: CASE EVENT DATE: 20210921
